FAERS Safety Report 7429070-3 (Version None)
Quarter: 2011Q2

REPORT INFORMATION
  Report Type: 
  Country: None (occurrence: None)
  Receive Date: 20110421
  Receipt Date: 20110412
  Transmission Date: 20111010
  Serious: Yes (Hospitalization)
  Sender: FDA-Public Use
  Company Number: JP-ASTRAZENECA-2011SE20931

PATIENT
  Age: 44 Year
  Sex: Female
  Weight: 78 kg

DRUGS (7)
  1. ZOMIG [Suspect]
     Indication: COMPLETED SUICIDE
     Dosage: TOOK 14 TABLETS OF ZOMIG
     Route: 048
     Dates: start: 20110405, end: 20110405
  2. PAXIL [Concomitant]
     Route: 048
     Dates: start: 20101126, end: 20101207
  3. PAXIL [Concomitant]
     Route: 048
     Dates: start: 20101207
  4. LIPITOR [Suspect]
     Indication: HYPERLIPIDAEMIA
     Dosage: 43 TABLETS OF LIPITOR
     Route: 048
  5. LENDORMIN D [Concomitant]
     Indication: CONVERSION DISORDER
     Route: 048
     Dates: start: 20110111
  6. REZALTAS [Suspect]
     Indication: HYPERTENSION
     Route: 048
     Dates: start: 20110315
  7. PAXIL [Concomitant]
     Indication: CONVERSION DISORDER
     Route: 048
     Dates: start: 20101112, end: 20101126

REACTIONS (3)
  - BLOOD PRESSURE DECREASED [None]
  - OVERDOSE [None]
  - ELECTROCARDIOGRAM QT PROLONGED [None]
